FAERS Safety Report 9212851 (Version 1)
Quarter: 2013Q2

REPORT INFORMATION
  Report Type: Spontaneous
  Country: US (occurrence: None)
  Receive Date: 20130403
  Receipt Date: 20130403
  Transmission Date: 20140414
  Serious: No
  Sender: FDA-Public Use
  Company Number: None

PATIENT
  Sex: Male

DRUGS (1)
  1. SPRYCEL [Suspect]
     Indication: NEOPLASM MALIGNANT
     Route: 048
     Dates: start: 201203

REACTIONS (2)
  - Fluid retention [None]
  - Lung disorder [None]
